FAERS Safety Report 17227072 (Version 1)
Quarter: 2020Q1

REPORT INFORMATION
  Report Type: Spontaneous
  Country: JP (occurrence: JP)
  Receive Date: 20200103
  Receipt Date: 20200103
  Transmission Date: 20200409
  Serious: Yes (Life-Threatening, Hospitalization, Other)
  Sender: FDA-Public Use
  Company Number: JP-BRISTOL-MYERS SQUIBB COMPANY-BMS-2019-124341

PATIENT
  Age: 42 Year
  Sex: Female

DRUGS (3)
  1. WARFARIN SODIUM. [Suspect]
     Active Substance: WARFARIN SODIUM
     Indication: ANTICOAGULANT THERAPY
     Dosage: UNK
     Route: 065
  2. ASPIRIN. [Suspect]
     Active Substance: ASPIRIN
     Indication: ANTICOAGULANT THERAPY
     Dosage: UNK
     Route: 065
  3. ASPIRIN. [Suspect]
     Active Substance: ASPIRIN
     Indication: PRODUCT USED FOR UNKNOWN INDICATION
     Dosage: DURING HER SECOND PREGNANCY
     Route: 065

REACTIONS (9)
  - Coma [Recovering/Resolving]
  - Cerebellar haemorrhage [Recovering/Resolving]
  - Brain compression [Recovering/Resolving]
  - Aortic dissection [Recovering/Resolving]
  - Hypertension [Recovering/Resolving]
  - Pleural effusion [Recovering/Resolving]
  - Condition aggravated [Recovering/Resolving]
  - Nephropathy [Recovering/Resolving]
  - Intraventricular haemorrhage [Recovering/Resolving]
